FAERS Safety Report 21443717 (Version 1)
Quarter: 2022Q4

REPORT INFORMATION
  Report Type: Spontaneous
  Country: None (occurrence: US)
  Receive Date: 20221012
  Receipt Date: 20221012
  Transmission Date: 20230113
  Serious: No
  Sender: FDA-Public Use
  Company Number: US-Lavipharm SA-2133727

PATIENT
  Age: 69 Year
  Sex: Female

DRUGS (2)
  1. CATAPRES-TTS [Suspect]
     Active Substance: CLONIDINE
     Indication: Hypertension
  2. DIOVAN [Concomitant]
     Active Substance: VALSARTAN

REACTIONS (1)
  - Product dose omission issue [Unknown]
